FAERS Safety Report 17061856 (Version 1)
Quarter: 2019Q4

REPORT INFORMATION
  Report Type: Other
  Country: CN (occurrence: CN)
  Receive Date: 20191121
  Receipt Date: 20191121
  Transmission Date: 20200122
  Serious: Yes (Life-Threatening, Other)
  Sender: FDA-Public Use
  Company Number: CN-JIANGSU HENGRUI MEDICINE CO., LTD.-2077104

PATIENT
  Age: 41 Year
  Sex: Male
  Weight: 68 kg

DRUGS (4)
  1. CISATRACURIUM BESYLATE INJECTION USP, 20 MG/10 ML (2 MG/ML) MULTI-DOSE [Suspect]
     Active Substance: CISATRACURIUM BESYLATE
     Indication: HYPOTONIA
     Route: 040
     Dates: start: 20191011
  2. MIDAZOLAM [Suspect]
     Active Substance: MIDAZOLAM HYDROCHLORIDE
     Route: 040
     Dates: start: 20191011, end: 20191011
  3. SUFENTANIL CITRATE INJECTION [Suspect]
     Active Substance: SUFENTANIL CITRATE
     Route: 040
     Dates: start: 20191011, end: 20191011
  4. PROPOFOL INJECTION [Concomitant]
     Active Substance: PROPOFOL
     Route: 040
     Dates: start: 20191011, end: 20191011

REACTIONS (1)
  - Anaphylactic shock [Recovered/Resolved]

NARRATIVE: CASE EVENT DATE: 20191011
